FAERS Safety Report 5673372-8 (Version None)
Quarter: 2008Q1

REPORT INFORMATION
  Report Type: 
  Country: None (occurrence: None)
  Receive Date: 20080317
  Receipt Date: 20080304
  Transmission Date: 20080703
  Serious: Yes (Other)
  Sender: FDA-Public Use
  Company Number: 2008MP000062

PATIENT
  Age: 83 Year
  Sex: Female

DRUGS (1)
  1. PILOCARPINE HYDROCHLORIDE [Suspect]
     Indication: SJOGREN'S SYNDROME
     Dosage: 15 MG; QD; PO
     Route: 048
     Dates: start: 20080121, end: 20080124

REACTIONS (4)
  - ANOREXIA [None]
  - ASTHENIA [None]
  - DEPRESSION [None]
  - HYPERSOMNIA [None]
